FAERS Safety Report 5007582-X (Version None)
Quarter: 2006Q2

REPORT INFORMATION
  Report Type: 
  Country: None (occurrence: None)
  Receive Date: 20060522
  Receipt Date: 20060130
  Transmission Date: 20061013
  Serious: Yes (Other)
  Sender: FDA-Public Use
  Company Number: US-AVENTIS-200611101US

PATIENT
  Age: 46 Year
  Sex: Female

DRUGS (7)
  1. KETEK [Suspect]
     Indication: SINUSITIS
     Route: 048
     Dates: start: 20060119
  2. KETEK [Suspect]
     Indication: PNEUMONIA
     Route: 048
     Dates: start: 20060119
  3. TYLENOL (CAPLET) [Concomitant]
     Dosage: DOSE: 6-8
     Dates: end: 20060126
  4. EFFEXOR [Concomitant]
     Dosage: DOSE: UNKNOWN
  5. FLEXERIL [Concomitant]
     Dosage: DOSE: UNKNOWN
  6. LEVOTHYROXINE SODIUM [Concomitant]
     Dosage: DOSE: UNKNOWN
  7. ORAL CONTRACEPTIVE [Concomitant]
     Dosage: DOSE: UNK

REACTIONS (12)
  - ALANINE AMINOTRANSFERASE INCREASED [None]
  - ASPARTATE AMINOTRANSFERASE INCREASED [None]
  - FATIGUE [None]
  - HEADACHE [None]
  - HEPATOCELLULAR DAMAGE [None]
  - JAUNDICE [None]
  - LIVER DISORDER [None]
  - MYCOPLASMA SEROLOGY POSITIVE [None]
  - NASAL SEPTUM DEVIATION [None]
  - PYREXIA [None]
  - RED BLOOD CELL COUNT DECREASED [None]
  - WHITE BLOOD CELL COUNT DECREASED [None]
